FAERS Safety Report 23381099 (Version 2)
Quarter: 2024Q1

REPORT INFORMATION
  Report Type: Spontaneous
  Country: US (occurrence: US)
  Receive Date: 20240109
  Receipt Date: 20240308
  Transmission Date: 20240410
  Serious: Yes (Other)
  Sender: FDA-Public Use
  Company Number: US-BRISTOL-MYERS SQUIBB COMPANY-2024-003750

PATIENT
  Age: 57 Year
  Sex: Female
  Weight: 57.0 kg

DRUGS (2)
  1. LENALIDOMIDE [Suspect]
     Active Substance: LENALIDOMIDE
     Indication: Plasma cell myeloma
     Dosage: DAILY
     Route: 048
     Dates: start: 20221222
  2. LENALIDOMIDE [Suspect]
     Active Substance: LENALIDOMIDE
     Dosage: FREQUENCY: 10MG DAILY TO 10MG D 1-14 Q 28 DAY; DAILY DAYS 1-14, THEN 14 DAYS OFF
     Route: 048
     Dates: start: 20240121

REACTIONS (4)
  - Colitis [Not Recovered/Not Resolved]
  - Off label use [Unknown]
  - Platelet count decreased [Not Recovered/Not Resolved]
  - Product dose omission in error [Not Recovered/Not Resolved]
